FAERS Safety Report 16392163 (Version 1)
Quarter: 2019Q2

REPORT INFORMATION
  Report Type: Spontaneous
  Country: US (occurrence: US)
  Receive Date: 20190605
  Receipt Date: 20190605
  Transmission Date: 20190711
  Serious: No
  Sender: FDA-Public Use
  Company Number: US-HIKMA PHARMACEUTICALS USA INC.-US-H14001-19-01497

PATIENT
  Age: 77 Year
  Sex: Male
  Weight: 83.9 kg

DRUGS (12)
  1. AVODART [Concomitant]
     Active Substance: DUTASTERIDE
     Indication: NASAL OEDEMA
  2. FLUTICASONE PROPIONATE. [Suspect]
     Active Substance: FLUTICASONE PROPIONATE
     Indication: NASAL CONGESTION
     Route: 045
     Dates: start: 2019
  3. MAGNESIUM [Concomitant]
     Active Substance: MAGNESIUM
     Indication: NASAL OEDEMA
  4. METOPROLOL. [Concomitant]
     Active Substance: METOPROLOL
     Indication: NASAL OEDEMA
  5. METAMUCIL [Concomitant]
     Active Substance: PLANTAGO SEED
     Indication: NASAL OEDEMA
  6. AZELASTINE. [Concomitant]
     Active Substance: AZELASTINE HYDROCHLORIDE
     Indication: PRODUCT USED FOR UNKNOWN INDICATION
     Route: 065
  7. FLUTICASONE PROPIONATE. [Suspect]
     Active Substance: FLUTICASONE PROPIONATE
     Indication: NASAL OEDEMA
     Route: 047
     Dates: start: 20190228, end: 20190228
  8. AVODART [Concomitant]
     Active Substance: DUTASTERIDE
     Indication: PRODUCT USED FOR UNKNOWN INDICATION
     Route: 065
  9. METOPROLOL. [Concomitant]
     Active Substance: METOPROLOL
     Indication: PRODUCT USED FOR UNKNOWN INDICATION
     Route: 065
     Dates: start: 201901
  10. MAGNESIUM [Concomitant]
     Active Substance: MAGNESIUM
     Indication: PRODUCT USED FOR UNKNOWN INDICATION
     Route: 065
     Dates: start: 201901
  11. METAMUCIL [Concomitant]
     Active Substance: PLANTAGO SEED
     Indication: PRODUCT USED FOR UNKNOWN INDICATION
     Route: 065
     Dates: start: 201811
  12. AZELASTINE. [Concomitant]
     Active Substance: AZELASTINE HYDROCHLORIDE
     Indication: NASAL OEDEMA

REACTIONS (3)
  - Epistaxis [Unknown]
  - Off label use [Unknown]
  - Exposure via eye contact [Recovered/Resolved]

NARRATIVE: CASE EVENT DATE: 2019
